FAERS Safety Report 7823421-3 (Version None)
Quarter: 2011Q4

REPORT INFORMATION
  Report Type: 
  Country: None (occurrence: None)
  Receive Date: 20111014
  Receipt Date: 20111005
  Transmission Date: 20120403
  Serious: Yes (Other)
  Sender: FDA-Public Use
  Company Number: AUR-APL-2011-05407

PATIENT
  Age: 74 Year
  Sex: Female
  Weight: 99.32 kg

DRUGS (9)
  1. LEVOTHYROXINE SODIUM [Concomitant]
  2. LISINOPRIL [Suspect]
     Indication: HYPERTENSION
     Dosage: (50 MG, 1 D),
  3. CELECOXIB [Suspect]
     Indication: ARTHRITIS
     Dosage: (200 MG, 1 D), ORAL
     Route: 048
     Dates: start: 20110601, end: 20111003
  4. FUROSEMIDE [Concomitant]
  5. TAMSULOSIN HCL [Concomitant]
  6. CYMBALTA [Concomitant]
  7. LYRICA [Concomitant]
  8. NEXIUM [Concomitant]
  9. HYDROCODONE BITARTRATE [Concomitant]

REACTIONS (3)
  - SKIN DISORDER [None]
  - PRURITUS [None]
  - PAIN [None]
